FAERS Safety Report 7018026-0 (Version None)
Quarter: 2010Q3

REPORT INFORMATION
  Report Type: 
  Country: None (occurrence: None)
  Receive Date: 20100927
  Receipt Date: 20100927
  Transmission Date: 20110219
  Serious: Yes (Other)
  Sender: FDA-Public Use
  Company Number: None

PATIENT
  Age: 62 Year
  Sex: Male
  Weight: 77.1115 kg

DRUGS (1)
  1. LEVAQUIN [Suspect]
     Indication: BLADDER CATHETERISATION
     Dates: start: 20100922, end: 20100922

REACTIONS (3)
  - DIZZINESS [None]
  - HYPERHIDROSIS [None]
  - VOMITING [None]
